FAERS Safety Report 5669425-0 (Version None)
Quarter: 2008Q1

REPORT INFORMATION
  Report Type: 
  Country: None (occurrence: None)
  Receive Date: 20080317
  Receipt Date: 20080311
  Transmission Date: 20080703
  Serious: Yes (Hospitalization)
  Sender: FDA-Public Use
  Company Number: A0714638A

PATIENT
  Sex: Female

DRUGS (2)
  1. LAMICTAL [Suspect]
     Indication: DRUG USE FOR UNKNOWN INDICATION
     Route: 048
  2. UNKNOWN [Concomitant]

REACTIONS (7)
  - ABNORMAL DREAMS [None]
  - AGGRESSION [None]
  - EUPHORIC MOOD [None]
  - FEAR [None]
  - HALLUCINATION [None]
  - PARAESTHESIA [None]
  - TREMOR [None]
